FAERS Safety Report 9333293 (Version 3)
Quarter: 2014Q1

REPORT INFORMATION
  Report Type: Report from Study
  Country: BR (occurrence: BR)
  Receive Date: 20130606
  Receipt Date: 20140224
  Transmission Date: 20141002
  Serious: Yes (Hospitalization, Other)
  Sender: FDA-Public Use
  Company Number: PHHY2013BR053529

PATIENT
  Age: 89 Year
  Sex: Female

DRUGS (10)
  1. ACLASTA [Suspect]
     Indication: OSTEOPOROSIS
     Dosage: 5 MG/100 ML, UNK
     Route: 042
     Dates: start: 2009
  2. RIVOTRIL [Concomitant]
     Indication: SLEEP DISORDER
     Dosage: UNK UKN, UNK
  3. ACETYLSALICYLIC ACID [Concomitant]
     Dosage: UNK UKN, UNK
     Dates: start: 2010
  4. MONOCORDIL [Concomitant]
     Indication: CARDIAC DISORDER
     Dosage: UNK UKN, UNK
     Dates: start: 2011
  5. FUROSEMIDE [Concomitant]
     Indication: CARDIAC DISORDER
     Dosage: UNK UKN, UNK
     Dates: start: 2011
  6. CILOSTAZOL [Concomitant]
     Indication: VENOUS OCCLUSION
     Dosage: UNK UKN, UNK
     Dates: start: 2004
  7. ATENOLOL [Concomitant]
     Indication: VENOUS OCCLUSION
     Dosage: UNK UKN, UNK
     Dates: start: 2004
  8. OMEPRAZOLE [Concomitant]
     Indication: GASTRIC DISORDER
     Dosage: UNK UKN, UNK
  9. SIMVASTATIN [Concomitant]
     Indication: BLOOD CHOLESTEROL INCREASED
     Dosage: UNK UKN, UNK
     Dates: start: 2011
  10. LOSARTAN [Concomitant]
     Indication: CARDIAC DISORDER
     Dosage: UNK UKN, UNK

REACTIONS (7)
  - Dengue fever [Recovered/Resolved]
  - Pneumonia [Recovered/Resolved]
  - Influenza [Recovered/Resolved]
  - Pyrexia [Recovered/Resolved]
  - Vascular pain [Unknown]
  - Pain in extremity [Not Recovered/Not Resolved]
  - Muscle spasms [Not Recovered/Not Resolved]
